FAERS Safety Report 9549672 (Version 1)
Quarter: 2013Q3

REPORT INFORMATION
  Report Type: Report from Study
  Country: US (occurrence: US)
  Receive Date: 20130924
  Receipt Date: 20130924
  Transmission Date: 20140515
  Serious: Yes (Hospitalization)
  Sender: FDA-Public Use
  Company Number: US-PFIZER INC-2013272365

PATIENT
  Age: 18 Year
  Sex: Male

DRUGS (6)
  1. PHENYTOIN [Suspect]
     Indication: CONVULSION
     Dosage: UNK
  2. DIAZEPAM [Suspect]
     Indication: CONVULSION
     Dosage: 30 MG, UNK
     Route: 042
  3. CARBAMAZEPINE [Suspect]
     Indication: CONVULSION
     Dosage: UNK
  4. VALPROATE [Suspect]
     Indication: STATUS EPILEPTICUS
     Dosage: UNK
  5. NITRAZEPAM [Concomitant]
     Indication: STATUS EPILEPTICUS
     Dosage: UNK
  6. PHENOBARBITAL [Concomitant]
     Indication: CONVULSION
     Dosage: UNK

REACTIONS (2)
  - Drug ineffective [Not Recovered/Not Resolved]
  - Apnoea [Unknown]
